FAERS Safety Report 7987553-1 (Version None)
Quarter: 2011Q4

REPORT INFORMATION
  Report Type: 
  Country: None (occurrence: None)
  Receive Date: 20111216
  Receipt Date: 20110425
  Transmission Date: 20120403
  Serious: No
  Sender: FDA-Public Use
  Company Number: US-BRISTOL-MYERS SQUIBB COMPANY-15668197

PATIENT
  Age: 44 Year
  Sex: Male

DRUGS (2)
  1. LITHIUM CARBONATE [Suspect]
     Dosage: RECEIVED UPTO 20 MG.
  2. ABILIFY [Suspect]
     Indication: BIPOLAR DISORDER
     Dosage: 1 DF: UP TO 20 MG.STARTED BETWEEN 08AUG-11AUG10
     Route: 048
     Dates: start: 20100801, end: 20100101

REACTIONS (4)
  - AKATHISIA [None]
  - RESTLESSNESS [None]
  - INSOMNIA [None]
  - MUSCLE SPASMS [None]
